FAERS Safety Report 5085418-9 (Version None)
Quarter: 2006Q3

REPORT INFORMATION
  Report Type: 
  Country: None (occurrence: None)
  Receive Date: 20060817
  Receipt Date: 20060803
  Transmission Date: 20061208
  Serious: Yes (Hospitalization)
  Sender: FDA-Public Use
  Company Number: 2006096530

PATIENT
  Sex: Female

DRUGS (1)
  1. BEXTRA [Suspect]
     Indication: CARDIOVASCULAR DISORDER
     Dosage: 40 MG (20 MG, 2 IN 1 D), UNKNOWN

REACTIONS (4)
  - ISCHAEMIC STROKE [None]
  - MEMORY IMPAIRMENT [None]
  - MUSCULAR WEAKNESS [None]
  - PRURITUS [None]
